FAERS Safety Report 8880639 (Version 1)
Quarter: 2012Q4

REPORT INFORMATION
  Report Type: 
  Country: US (occurrence: US)
  Receive Date: 20121031
  Receipt Date: 20121031
  Transmission Date: 20130627
  Serious: No
  Sender: FDA-Public Use
  Company Number: US-BAYER-2012-111873

PATIENT
  Age: 84 Year
  Sex: Male
  Weight: 95.24 kg

DRUGS (2)
  1. ALEVE CAPLET/TABLET,MIDOL EXTENDED RELIEF CAPLET [Suspect]
     Indication: PAIN RELIEF
     Dosage: UNK
     Route: 048
     Dates: start: 201208, end: 201209
  2. 25 DIFFERENT MEDICATIONS DAILY [Concomitant]

REACTIONS (2)
  - No adverse event [None]
  - Drug ineffective [Recovered/Resolved]
